FAERS Safety Report 23059942 (Version 2)
Quarter: 2023Q4

REPORT INFORMATION
  Report Type: Report from Study
  Country: US (occurrence: US)
  Receive Date: 20231012
  Receipt Date: 20231013
  Transmission Date: 20240110
  Serious: Yes (Death)
  Sender: FDA-Public Use
  Company Number: US-ABBVIE-5446776

PATIENT
  Sex: Female

DRUGS (84)
  1. VENCLEXTA [Suspect]
     Active Substance: VENETOCLAX
     Indication: Acute myeloid leukaemia
     Dosage: TABLET 50 MG?TAKE 1 TABLET BY MOUTH DAILY TAKE WITH 20MG TO TOTAL 70MG DAILY
     Route: 048
  2. VENCLEXTA [Suspect]
     Active Substance: VENETOCLAX
     Indication: Acute myeloid leukaemia
     Dosage: TAKE 2 TABLET(S) BY MOUTH DAILY TAKE WITH 50MG TAB TO TOTAL 70MG DAILY?TABLET 10 MG
     Route: 048
  3. VENCLEXTA [Suspect]
     Active Substance: VENETOCLAX
     Indication: Acute myeloid leukaemia
     Dosage: DAY 1
     Route: 048
  4. VENCLEXTA [Suspect]
     Active Substance: VENETOCLAX
     Indication: Acute myeloid leukaemia
     Dosage: DAY 2
     Route: 048
  5. VENCLEXTA [Suspect]
     Active Substance: VENETOCLAX
     Indication: Acute myeloid leukaemia
     Dosage: DAY 3
     Route: 048
  6. VENCLEXTA [Suspect]
     Active Substance: VENETOCLAX
     Indication: Acute myeloid leukaemia
     Dosage: BEYOND 70MG
     Route: 048
  7. FLUZONE [Concomitant]
     Active Substance: INFLUENZA A VIRUS A/CALIFORNIA/7/2009 X-179A (H1N1) ANTIGEN (FORMALDEHYDE INACTIVATED)\INFLUENZA A V
     Indication: Product used for unknown indication
     Dosage: SUSPENSION?DRUG START DATE 2022
     Route: 030
  8. FLUZONE [Concomitant]
     Active Substance: INFLUENZA A VIRUS A/CALIFORNIA/7/2009 X-179A (H1N1) ANTIGEN (FORMALDEHYDE INACTIVATED)\INFLUENZA A V
     Indication: Product used for unknown indication
     Dosage: SUSPENSION PEN INJECTOR
     Route: 023
     Dates: start: 201910, end: 20200602
  9. FLUZONE [Concomitant]
     Active Substance: INFLUENZA A VIRUS A/CALIFORNIA/7/2009 X-179A (H1N1) ANTIGEN (FORMALDEHYDE INACTIVATED)\INFLUENZA A V
     Indication: Product used for unknown indication
     Dosage: HIGH DOSE SUSPENSION PREFILLED SYRINGE?DRUG START DATE - 2021
     Route: 030
     Dates: end: 20220914
  10. FLUZONE [Concomitant]
     Active Substance: INFLUENZA A VIRUS A/CALIFORNIA/7/2009 X-179A (H1N1) ANTIGEN (FORMALDEHYDE INACTIVATED)\INFLUENZA A V
     Indication: Product used for unknown indication
     Dosage: QUADRIVALENT SUSPENSION?DRUG START DATE OCT 2020
     Route: 030
     Dates: end: 20210625
  11. FLUZONE [Concomitant]
     Active Substance: INFLUENZA A VIRUS A/CALIFORNIA/7/2009 X-179A (H1N1) ANTIGEN (FORMALDEHYDE INACTIVATED)\INFLUENZA A V
     Indication: Product used for unknown indication
     Dosage: QUADRIVALENT SUSPENSION?DRUG START DATE - OCT-2022
     Route: 030
     Dates: end: 20221220
  12. LISINOPRIL [Concomitant]
     Active Substance: LISINOPRIL
     Indication: Product used for unknown indication
     Route: 048
  13. MODERNA COVID-19 VACCINE [Concomitant]
     Active Substance: ELASOMERAN
     Indication: Product used for unknown indication
     Dosage: BIVALENT BOOSTER?SUSPENSION
     Route: 030
     Dates: start: 20220930
  14. MODERNA COVID-19 VACCINE [Concomitant]
     Active Substance: ELASOMERAN
     Indication: Product used for unknown indication
     Dosage: SUSPENSION
     Route: 030
     Dates: start: 20210318
  15. MODERNA COVID-19 VACCINE [Concomitant]
     Active Substance: ELASOMERAN
     Indication: Product used for unknown indication
     Dosage: SUSPENSION
     Route: 030
     Dates: start: 20211031
  16. MODERNA COVID-19 VACCINE [Concomitant]
     Active Substance: ELASOMERAN
     Indication: Product used for unknown indication
     Dosage: SUSPENSION?DRUG START DATE OCT 2021
     Route: 030
     Dates: end: 20220510
  17. MODERNA COVID-19 VACCINE [Concomitant]
     Active Substance: ELASOMERAN
     Indication: Product used for unknown indication
     Dosage: SUSPENSION?DRUG END DATE 04 APR 2022
     Route: 030
     Dates: start: 20211130
  18. LEVOFLOXACIN [Concomitant]
     Active Substance: LEVOFLOXACIN
     Indication: Product used for unknown indication
     Route: 048
     Dates: start: 20230113
  19. LEVOFLOXACIN [Concomitant]
     Active Substance: LEVOFLOXACIN
     Indication: Product used for unknown indication
     Route: 048
     Dates: start: 20190207
  20. OMEPRAZOLE [Concomitant]
     Active Substance: OMEPRAZOLE
     Indication: Product used for unknown indication
     Dosage: TABLETS ENTERIC COATED
     Route: 048
  21. OMEPRAZOLE [Concomitant]
     Active Substance: OMEPRAZOLE
     Indication: Product used for unknown indication
     Dosage: TABLETS ENTERIC COATED?PRN
     Route: 048
     Dates: end: 20190704
  22. VITAMIN B COMPLEX [Concomitant]
     Active Substance: CYANOCOBALAMIN\DEXPANTHENOL\NIACINAMIDE\PYRIDOXINE HYDROCHLORIDE\RIBOFLAVIN 5^-PHOSPHATE SODIUM\THIA
     Indication: Product used for unknown indication
     Route: 048
  23. VITAMIN D [Concomitant]
     Active Substance: VITAMIN D NOS
     Indication: Product used for unknown indication
     Route: 048
  24. ONDANSETRON [Concomitant]
     Active Substance: ONDANSETRON
     Indication: Product used for unknown indication
     Route: 048
     Dates: start: 20180926
  25. ONDANSETRON [Concomitant]
     Active Substance: ONDANSETRON
     Indication: Product used for unknown indication
     Dosage: ONCE INTERMITTENT OVER 30 MIN NS 50 ML, LAST GIVEN- 20-MAR-2020
     Route: 042
     Dates: start: 20191101, end: 20200320
  26. POSACONAZOLE [Concomitant]
     Active Substance: POSACONAZOLE
     Indication: Product used for unknown indication
     Dosage: TABLETS ENTERIC COATED
     Dates: start: 20230113
  27. PROCHLORPERAZINE [Concomitant]
     Active Substance: PROCHLORPERAZINE
     Indication: Product used for unknown indication
     Dates: start: 20230109, end: 20230216
  28. ZITHROMAX [Concomitant]
     Active Substance: AZITHROMYCIN DIHYDRATE
     Indication: Product used for unknown indication
     Dates: start: 20221103
  29. XARELTO [Concomitant]
     Active Substance: RIVAROXABAN
     Indication: Product used for unknown indication
     Route: 048
     Dates: start: 20180913
  30. XARELTO [Concomitant]
     Active Substance: RIVAROXABAN
     Indication: Product used for unknown indication
     Route: 048
     Dates: end: 20201125
  31. ABEMACICLIB [Concomitant]
     Active Substance: ABEMACICLIB
     Indication: Product used for unknown indication
     Route: 048
     Dates: start: 20191023
  32. ABEMACICLIB [Concomitant]
     Active Substance: ABEMACICLIB
     Indication: Product used for unknown indication
     Route: 048
     Dates: start: 20220914, end: 20221103
  33. AZACITIDINE [Concomitant]
     Active Substance: AZACITIDINE
     Indication: Product used for unknown indication
     Dosage: SUSPENSION
     Dates: start: 20230109, end: 20230216
  34. LETROZOLE [Concomitant]
     Active Substance: LETROZOLE
     Indication: Product used for unknown indication
     Route: 048
     Dates: start: 20190906
  35. ACYCLOVIR [Concomitant]
     Active Substance: ACYCLOVIR
     Indication: Product used for unknown indication
     Route: 048
     Dates: start: 20230109
  36. ALLOPURINOL [Concomitant]
     Active Substance: ALLOPURINOL
     Indication: Product used for unknown indication
     Dates: start: 20230113
  37. DEXAMETHASONE [Concomitant]
     Active Substance: DEXAMETHASONE
     Indication: Product used for unknown indication
     Dosage: DRUG END DATE 2020
     Route: 048
     Dates: start: 20200124
  38. DEXAMETHASONE [Concomitant]
     Active Substance: DEXAMETHASONE
     Indication: Product used for unknown indication
     Route: 048
     Dates: end: 20200522
  39. HEPARIN [Concomitant]
     Active Substance: HEPARIN SODIUM
     Indication: Product used for unknown indication
     Dosage: LOCK FLUSH
     Dates: start: 20180928, end: 20230214
  40. PFIZER-BIONTECH COVID-19 VACCINE [Concomitant]
     Active Substance: TOZINAMERAN
     Indication: Product used for unknown indication
     Dosage: VACCINE SUSPENSION
     Route: 030
     Dates: start: 20210218
  41. ACETAMINOPHEN [Concomitant]
     Active Substance: ACETAMINOPHEN
     Indication: Product used for unknown indication
     Route: 048
     Dates: start: 20221230, end: 20221230
  42. ALLEGRA ALLERGY [Concomitant]
     Active Substance: FEXOFENADINE HYDROCHLORIDE
     Indication: Product used for unknown indication
     Route: 048
     Dates: start: 20190102, end: 20220817
  43. APREPITANT [Concomitant]
     Active Substance: APREPITANT
     Indication: Product used for unknown indication
     Dosage: EMULSION?ONCE OVER 30 MINT IN NS 100 ML LAST TAKEN 6-DEC-2018
     Route: 042
     Dates: start: 20181019, end: 20181206
  44. ARIMIDEX [Concomitant]
     Active Substance: ANASTROZOLE
     Indication: Product used for unknown indication
     Dosage: FOR 30 DAYS
     Route: 048
     Dates: start: 20190502, end: 20190808
  45. ATIVAN [Concomitant]
     Active Substance: LORAZEPAM
     Indication: Product used for unknown indication
     Dosage: ONCE PUSH OVER 10 SECOND LAST TAKEN 22-NOV-2019
     Dates: start: 20191115, end: 20191122
  46. CYCLOPHOSPHAMIDE [Concomitant]
     Active Substance: CYCLOPHOSPHAMIDE
     Indication: Product used for unknown indication
     Dosage: SOLUTION WHEN RECONSTITUTED?OVER 30 MIN FOR 1 DAYS IN NS
     Route: 042
     Dates: start: 20180928, end: 20181206
  47. XGEVA [Concomitant]
     Active Substance: DENOSUMAB
     Indication: Product used for unknown indication
     Dosage: LAST TAKEN 10-NOV-2021
     Route: 058
     Dates: start: 20210818, end: 20211110
  48. DEXAMETHASONE SODIUM PHOSPHATE EIPICO [Concomitant]
     Indication: Product used for unknown indication
     Dosage: ONCE INTERMITTENT OVER 20 MINUTES IN NS 50 ML LAST TAKEN 20-MAR-2020
     Route: 042
     Dates: start: 20180928, end: 20200320
  49. DIPHENHYDRAMINE [Concomitant]
     Active Substance: DIPHENHYDRAMINE
     Indication: Product used for unknown indication
     Dosage: ONCE LAST TAKEN: 30-DEC-2022
     Route: 048
     Dates: start: 20221230, end: 20221230
  50. DIPHENHYDRAMINE [Concomitant]
     Active Substance: DIPHENHYDRAMINE
     Indication: Product used for unknown indication
     Dosage: INTERMITTENT OVER 20 MINUTES FOR 1 DAYS IN NS 50 ML LAST 21-MAR-2019
     Route: 042
     Dates: start: 20181227, end: 20190321
  51. DOXORUBICIN HYDROCHLORIDE [Concomitant]
     Active Substance: DOXORUBICIN HYDROCHLORIDE
     Indication: Product used for unknown indication
     Dosage: LAST TAKEN: 6-DEC-2018
     Route: 042
     Dates: start: 20180928, end: 20181206
  52. DRONABINOL [Concomitant]
     Active Substance: DRONABINOL
     Indication: Product used for unknown indication
     Route: 048
     Dates: start: 20191220, end: 20220817
  53. FAMOTIDINE [Concomitant]
     Active Substance: FAMOTIDINE
     Indication: Product used for unknown indication
     Route: 048
     Dates: start: 20190102, end: 20220817
  54. FLUBLOK QUADRIVALENT NOS [Concomitant]
     Active Substance: INFLUENZA VIRUS VACCINE
     Indication: Product used for unknown indication
     Dosage: SOLUTION PREFILLED SYRINGE?ONCE LAST TAKEN: 25-NOV-2020
     Route: 030
     Dates: start: 20191016, end: 20201125
  55. FOSAPREPITANT [Concomitant]
     Active Substance: FOSAPREPITANT
     Indication: Product used for unknown indication
     Dosage: SOLUTION WHEN RECONSTITUTED
     Route: 042
     Dates: start: 20180928, end: 20180928
  56. GRANISETRON [Concomitant]
     Active Substance: GRANISETRON
     Indication: Product used for unknown indication
     Dosage: INTERMITTENT OVER 20 MINUTES FOR 1 DAYS IN NS 50 ML LAST TAKEN: 21-MAR-2019
     Route: 042
     Dates: start: 20181227, end: 20190321
  57. IMODIUM AD [Concomitant]
     Active Substance: LOPERAMIDE HYDROCHLORIDE
     Indication: Product used for unknown indication
     Dates: start: 20200110
  58. LOPERAMIDE HYDROCHLORIDE [Concomitant]
     Active Substance: LOPERAMIDE HYDROCHLORIDE
     Indication: Product used for unknown indication
     Dosage: ONCE LAST TAKEN: 10-JAN-2020
     Route: 048
     Dates: start: 20200103, end: 20200110
  59. LORAZEPAM [Concomitant]
     Active Substance: LORAZEPAM
     Indication: Product used for unknown indication
     Dosage: TAKE AS DIRECTED
     Route: 048
     Dates: start: 20220523, end: 20220817
  60. LORAZEPAM [Concomitant]
     Active Substance: LORAZEPAM
     Indication: Product used for unknown indication
     Dosage: OVER 10 SECOND FOR 1 DAY TAKEN : 20-MAR-2020
     Route: 042
     Dates: start: 20191129, end: 20200320
  61. METHOTREXATE [Concomitant]
     Active Substance: METHOTREXATE
     Indication: Product used for unknown indication
     Dosage: INTRACATHETER ?ONCE PUSH PF SALINE 4.5 ML LAST TAKEN: 29-JAN-2020
     Dates: start: 20191101, end: 20200129
  62. MIRTAZAPINE [Concomitant]
     Active Substance: MIRTAZAPINE
     Indication: Product used for unknown indication
     Dosage: FOR 30 DAYS
     Route: 048
     Dates: start: 20200206, end: 20230213
  63. MIRTAZAPINE [Concomitant]
     Active Substance: MIRTAZAPINE
     Indication: Product used for unknown indication
     Route: 048
  64. NEULASTA [Concomitant]
     Active Substance: PEGFILGRASTIM
     Indication: Product used for unknown indication
     Dosage: PREFILLED SYRINGE KIT?ONCE LAST TAKEN 06-DEC-2018
     Route: 058
     Dates: start: 20181115, end: 20181206
  65. SODIUM CHLORIDE [Suspect]
     Active Substance: SODIUM CHLORIDE
     Indication: Product used for unknown indication
     Dosage: FLUSH
     Route: 037
     Dates: start: 20191101, end: 20200313
  66. SODIUM CHLORIDE [Suspect]
     Active Substance: SODIUM CHLORIDE
     Indication: Product used for unknown indication
     Dosage: 0.9 %?LAST TAKEN: 6-DEC-2018
     Route: 042
     Dates: start: 20180928, end: 20181206
  67. PACLITAXEL [Concomitant]
     Active Substance: PACLITAXEL
     Indication: Product used for unknown indication
     Dosage: IN NS 250 ML LAST TAKEN: 21-MAR-2019
     Route: 042
     Dates: start: 20181227, end: 20190321
  68. PALONOSETRON [Concomitant]
     Active Substance: PALONOSETRON
     Indication: Product used for unknown indication
     Dosage: INTERMITTENT OVER 20 MINUTES FOR 1 DAY IN NS 50 ML LAST TAKEN: 6-DEC-2018
     Route: 042
     Dates: start: 20180928, end: 20181206
  69. POTASSIUM CHLORIDE [Suspect]
     Active Substance: POTASSIUM CHLORIDE
     Indication: Product used for unknown indication
     Dosage: 20 MEQ
     Route: 048
     Dates: start: 20200117, end: 20220817
  70. POTASSIUM CHLORIDE [Suspect]
     Active Substance: POTASSIUM CHLORIDE
     Indication: Product used for unknown indication
     Dosage: TABLETS?20 MEQ?LAST TAKEN: 07-FEB-2020 DRUG START DATE -24-JAN-2020
     Route: 042
  71. PROCHLORPERAZINE [Concomitant]
     Active Substance: PROCHLORPERAZINE
     Indication: Product used for unknown indication
     Dosage: ONCE INTERMITTENT OVER 15 MINUTE IN NS 50 ML LAST TAKEN: 20-MAR-2020
     Route: 042
     Dates: start: 20191108, end: 20200320
  72. RIVAROXABAN [Concomitant]
     Active Substance: RIVAROXABAN
     Indication: Product used for unknown indication
     Dosage: FOR 30 DAYS
     Route: 048
     Dates: start: 20200108, end: 20221208
  73. THIOTEPA [Concomitant]
     Active Substance: THIOTEPA
     Indication: Product used for unknown indication
     Dosage: SOLUTION: WHEN RECONSTITUTED?ONCE PUSH IN PF SALINE 5 ML LAST TAKEN: 13-MAR-2020
     Route: 037
     Dates: start: 20180207, end: 20200313
  74. ZOLEDRONIC ACID [Concomitant]
     Active Substance: ZOLEDRONIC ACID
     Indication: Product used for unknown indication
     Dosage: INTERMITTANT OVER 15 MINUTES FOR 1 DAY IN NS 100 ML LAST TAKEN: 20-MAY-2021
     Route: 042
     Dates: start: 20191212, end: 20210520
  75. AMLODIPINE BESYLATE [Concomitant]
     Active Substance: AMLODIPINE BESYLATE
     Indication: Product used for unknown indication
     Route: 048
     Dates: start: 20180904, end: 20180913
  76. ANASTROZOLE [Concomitant]
     Active Substance: ANASTROZOLE
     Indication: Product used for unknown indication
     Route: 048
     Dates: start: 20190808, end: 20190925
  77. CHOLECALCIFEROL [Concomitant]
     Active Substance: CHOLECALCIFEROL
     Indication: Product used for unknown indication
     Dosage: 1000 UNITS
     Route: 048
     Dates: start: 20180904, end: 20210416
  78. FLONASE [Concomitant]
     Active Substance: FLUTICASONE PROPIONATE
     Indication: Product used for unknown indication
     Dosage: SUSPENSION?PRN
     Route: 045
     Dates: end: 20210609
  79. IRON [Concomitant]
     Active Substance: IRON
     Indication: Product used for unknown indication
     Route: 048
     Dates: end: 20221222
  80. POLYMYXIN B;TRIMETHOPRIM [Concomitant]
     Indication: Product used for unknown indication
     Dosage: OPHTHALMIC
     Dates: end: 20190812
  81. SILVADENE [Concomitant]
     Active Substance: SILVER SULFADIAZINE
     Indication: Product used for unknown indication
     Route: 061
     Dates: start: 20190521, end: 20190812
  82. VERZENIO [Concomitant]
     Active Substance: ABEMACICLIB
     Indication: Product used for unknown indication
     Route: 048
     Dates: end: 20220404
  83. VERZENIO [Concomitant]
     Active Substance: ABEMACICLIB
     Indication: Product used for unknown indication
     Route: 048
     Dates: end: 20220726
  84. VITAMIN B12 [Concomitant]
     Active Substance: CYANOCOBALAMIN
     Indication: Product used for unknown indication
     Dosage: 1000  G
     Route: 060
     Dates: start: 20200109, end: 20220817

REACTIONS (2)
  - Death [Fatal]
  - Off label use [Unknown]

NARRATIVE: CASE EVENT DATE: 20230101
